FAERS Safety Report 7475218-4 (Version None)
Quarter: 2011Q2

REPORT INFORMATION
  Report Type: 
  Country: None (occurrence: None)
  Receive Date: 20110512
  Receipt Date: 20110428
  Transmission Date: 20111010
  Serious: Yes (Hospitalization)
  Sender: FDA-Public Use
  Company Number: US-ELI_LILLY_AND_COMPANY-US201101004167

PATIENT
  Sex: Female

DRUGS (9)
  1. VITAMINS [Concomitant]
  2. FORTEO [Suspect]
     Indication: OSTEOPOROSIS
     Dosage: 20 UG, QD
     Dates: start: 20101228
  3. METOPROLOL SUCCINATE [Concomitant]
  4. WARFARIN SODIUM [Concomitant]
  5. MULTIVITAMIN [Concomitant]
  6. VITAMIN D [Concomitant]
     Dosage: UNK, 2/W
  7. PROTONIX [Concomitant]
  8. VENLAFAXINE [Concomitant]
  9. FORTEO [Suspect]
     Dosage: 20 UG, QD

REACTIONS (4)
  - HIATUS HERNIA [None]
  - MALAISE [None]
  - CHEST PAIN [None]
  - PAIN [None]
